FAERS Safety Report 14289045 (Version 8)
Quarter: 2022Q2

REPORT INFORMATION
  Report Type: Spontaneous
  Country: US (occurrence: US)
  Receive Date: 20171215
  Receipt Date: 20220422
  Transmission Date: 20220721
  Serious: No
  Sender: FDA-Public Use
  Company Number: US-PFIZER INC-2017531337

PATIENT
  Age: 56 Year
  Sex: Female
  Weight: 132 kg

DRUGS (8)
  1. IBRANCE [Suspect]
     Active Substance: PALBOCICLIB
     Indication: Breast cancer metastatic
     Dosage: 125 MG, 1X/DAY
     Route: 048
     Dates: start: 201604
  2. LETROZOLE [Concomitant]
     Active Substance: LETROZOLE
     Indication: Breast cancer metastatic
     Dosage: 2.5 MG, 1X/DAY
     Route: 048
     Dates: start: 201511
  3. NORCO [Concomitant]
     Active Substance: ACETAMINOPHEN\HYDROCODONE BITARTRATE
     Indication: Pain
     Dosage: 1 DF, AS NEEDED (1 TABLET EVERY 6 HOURS AS NEEDED)
     Route: 048
     Dates: start: 201511
  4. LORAZEPAM [Concomitant]
     Active Substance: LORAZEPAM
     Indication: Sleep disorder
     Dosage: 1.5 MG, 1X/DAY (AT NIGHT)
     Route: 048
     Dates: start: 201604
  5. CITALOPRAM [Concomitant]
     Active Substance: CITALOPRAM HYDROBROMIDE
     Indication: Depression
     Dosage: 10 MG, 1X/DAY
     Route: 048
     Dates: start: 2016
  6. LORATADINE [Concomitant]
     Active Substance: LORATADINE
     Indication: Hypersensitivity
     Dosage: 10 MG, 1X/DAY (IN THE MORNING)
     Route: 048
  7. CETIRIZINE [Concomitant]
     Active Substance: CETIRIZINE HYDROCHLORIDE
     Indication: Hypersensitivity
     Dosage: 10 MG, 1X/DAY
     Route: 048
     Dates: start: 2017
  8. BUDESONIDE [Concomitant]
     Active Substance: BUDESONIDE
     Indication: Nasal congestion
     Dosage: UNK, 1X/DAY (1 SPRAY PER NOSTRIL IN THE MORNING) ((INFREQUENTLY WILL USE AN EXTRA SPRAY PER NOSTRIL)
     Route: 045

REACTIONS (6)
  - Neoplasm progression [Unknown]
  - Fatigue [Recovering/Resolving]
  - Malaise [Recovering/Resolving]
  - Respiratory disorder [Unknown]
  - Amnesia [Unknown]
  - Abdominal discomfort [Unknown]

NARRATIVE: CASE EVENT DATE: 20160401
